FAERS Safety Report 5333929-0 (Version None)
Quarter: 2007Q2

REPORT INFORMATION
  Report Type: 
  Country: None (occurrence: None)
  Receive Date: 20070524
  Receipt Date: 20070514
  Transmission Date: 20071010
  Serious: Yes (Other)
  Sender: FDA-Public Use
  Company Number: FR-PFIZER INC-2007017589

PATIENT
  Sex: Female
  Weight: 63 kg

DRUGS (9)
  1. NEURONTIN [Suspect]
     Indication: NEURALGIA
     Route: 048
     Dates: start: 20060226, end: 20070310
  2. PLAVIX [Concomitant]
     Route: 048
  3. LASIX [Concomitant]
     Route: 048
  4. LOXEN [Concomitant]
     Route: 048
  5. COZAAR [Concomitant]
     Route: 048
  6. NOVONORM [Concomitant]
  7. CLOBAZAM [Concomitant]
     Route: 048
  8. PARACETAMOL [Concomitant]
     Route: 048
  9. MOVICOL [Concomitant]
     Route: 048

REACTIONS (1)
  - BLISTER [None]
